FAERS Safety Report 9165260 (Version 1)
Quarter: 2013Q1

REPORT INFORMATION
  Report Type: Spontaneous
  Country: US (occurrence: US)
  Receive Date: 20130315
  Receipt Date: 20130315
  Transmission Date: 20140127
  Serious: Yes (Other)
  Sender: FDA-Public Use
  Company Number: US-ELI_LILLY_AND_COMPANY-US201303002461

PATIENT
  Age: 89 Year
  Sex: Female

DRUGS (1)
  1. FORTEO [Suspect]
     Indication: OSTEOPOROSIS
     Dosage: UNK, QD
     Dates: start: 201301

REACTIONS (10)
  - Femur fracture [Unknown]
  - Malaise [Unknown]
  - Trismus [Unknown]
  - Nervousness [Unknown]
  - Heart rate increased [Unknown]
  - Nasal disorder [Unknown]
  - Multiple fractures [Unknown]
  - Laryngitis [Unknown]
  - Lung disorder [Unknown]
  - Hypertension [Unknown]
